FAERS Safety Report 9854840 (Version 1)
Quarter: 2014Q1

REPORT INFORMATION
  Report Type: Spontaneous
  Country: US (occurrence: None)
  Receive Date: 20140127
  Receipt Date: 20140127
  Transmission Date: 20141002
  Serious: Yes (Death)
  Sender: FDA-Public Use
  Company Number: SYM-2014-15185

PATIENT
  Age: 64 Year
  Sex: Female

DRUGS (1)
  1. XENAZINE (25 MILLIGRAM, TABLET) (TETRABENAZINE, TETRABENAZINE)? [Suspect]
     Indication: HUNTINGTON^S DISEASE
     Dosage: ORAL
     Route: 048
     Dates: start: 200812

REACTIONS (1)
  - Death [None]
